FAERS Safety Report 24254882 (Version 1)
Quarter: 2024Q3

REPORT INFORMATION
  Report Type: Spontaneous
  Country: FR (occurrence: FR)
  Receive Date: 20240827
  Receipt Date: 20240827
  Transmission Date: 20241016
  Serious: Yes (Disabling)
  Sender: ASTELLAS
  Company Number: FR-ASTELLAS-2024EU008066

PATIENT
  Age: 54 Year
  Sex: Female
  Weight: 47 kg

DRUGS (3)
  1. AMPHOTERICIN B [Suspect]
     Active Substance: AMPHOTERICIN B
     Indication: Cryptococcosis
     Dosage: 5 MG/KG, QD
     Route: 042
     Dates: start: 20240614, end: 20240704
  2. DOLIPRANE [Suspect]
     Active Substance: ACETAMINOPHEN
     Indication: Pain
     Dosage: 3 G, QD
     Route: 048
     Dates: start: 20240614, end: 20240701
  3. FLUCYTOSINE [Suspect]
     Active Substance: FLUCYTOSINE
     Indication: Cryptococcosis
     Dosage: 120 MG/KG, QD
     Route: 042
     Dates: start: 20240614, end: 20240704

REACTIONS (2)
  - Hypoacusis [Not Recovered/Not Resolved]
  - Transaminases increased [Recovered/Resolved]

NARRATIVE: CASE EVENT DATE: 20240627
